FAERS Safety Report 4338620-5 (Version None)
Quarter: 2004Q2

REPORT INFORMATION
  Report Type: 
  Country: None (occurrence: None)
  Receive Date: 20040409
  Receipt Date: 20040329
  Transmission Date: 20050107
  Serious: Yes (Other)
  Sender: FDA-Public Use
  Company Number: US071521

PATIENT
  Age: 77 Year
  Sex: Male

DRUGS (1)
  1. EPOGEN [Suspect]
     Indication: ANAEMIA OF MALIGNANT DISEASE
     Dosage: 40000, 1 IN 1
     Dates: start: 20010701

REACTIONS (1)
  - COLON CANCER RECURRENT [None]
